FAERS Safety Report 20382321 (Version 1)
Quarter: 2022Q1

REPORT INFORMATION
  Report Type: Spontaneous
  Country: US (occurrence: None)
  Receive Date: 20220127
  Receipt Date: 20220127
  Transmission Date: 20220423
  Serious: Yes (unspecified)
  Sender: FDA-Public Use
  Company Number: None

PATIENT
  Age: 90 Year
  Sex: Male
  Weight: 53 kg

DRUGS (1)
  1. FLUOROURACIL [Suspect]
     Active Substance: FLUOROURACIL
     Indication: Immunisation
     Dosage: FREQUENCY : TWICE A DAY;  THIN FIL, GM?
     Route: 061
     Dates: start: 20211119, end: 20211210

REACTIONS (6)
  - Rash [None]
  - Urticaria [None]
  - Pruritus [None]
  - Skin irritation [None]
  - Facial discomfort [None]
  - Burning sensation [None]

NARRATIVE: CASE EVENT DATE: 20211210
